FAERS Safety Report 6524096-6 (Version None)
Quarter: 2009Q4

REPORT INFORMATION
  Report Type: 
  Country: None (occurrence: None)
  Receive Date: 20091231
  Receipt Date: 20091223
  Transmission Date: 20100525
  Serious: Yes (Other)
  Sender: FDA-Public Use
  Company Number: ES-ABBOTT-09P-144-0615944-00

PATIENT
  Age: 47 Year
  Sex: Male

DRUGS (5)
  1. HUMIRA [Suspect]
     Indication: CROHN'S DISEASE
     Route: 058
     Dates: start: 20091120, end: 20091120
  2. SWINE FLU VACCINE [Suspect]
     Indication: PROPHYLAXIS
     Route: 058
     Dates: start: 20091118, end: 20091118
  3. IMUREL [Concomitant]
     Indication: CROHN'S DISEASE
     Route: 048
  4. CLAVERSAL [Concomitant]
     Indication: CROHN'S DISEASE
     Route: 048
  5. CORTOCOIDS [Concomitant]
     Indication: CROHN'S DISEASE
     Route: 048

REACTIONS (4)
  - BACK PAIN [None]
  - DYSSTASIA [None]
  - MUSCULAR WEAKNESS [None]
  - SENSORY DISTURBANCE [None]
